FAERS Safety Report 9075632 (Version 1)
Quarter: 2013Q1

REPORT INFORMATION
  Report Type: Report from Study
  Country: US (occurrence: US)
  Receive Date: 20130129
  Receipt Date: 20130129
  Transmission Date: 20140127
  Serious: No
  Sender: FDA-Public Use
  Company Number: US-ABBOTT-12P-163-0904741-00

PATIENT
  Age: 66 Year
  Sex: Male

DRUGS (11)
  1. HUMIRA 40 MG/0.8 ML PEN [Suspect]
     Indication: PSORIASIS
     Dosage: QOW
     Dates: start: 20120209
  2. CLOBEX [Concomitant]
     Indication: PSORIASIS
     Route: 061
  3. LOVASTATIN [Concomitant]
     Indication: BLOOD CHOLESTEROL INCREASED
     Dosage: DAILY
  4. OMEPRAZOL E [Concomitant]
     Indication: DYSPEPSIA
  5. BENAZEPRIL [Concomitant]
     Indication: HYPERTENSION
  6. TRIAMTERENE/HCTZ [Concomitant]
     Indication: DRUG THERAPY
     Dosage: 75/50 MG
  7. CLOBEX [Concomitant]
     Indication: PRURITUS
  8. VIT B 12 [Concomitant]
     Indication: PRODUCT USED FOR UNKNOWN INDICATION
  9. VIT K [Concomitant]
     Indication: PRODUCT USED FOR UNKNOWN INDICATION
  10. ZINC [Concomitant]
     Indication: PRODUCT USED FOR UNKNOWN INDICATION
  11. IRON TABS [Concomitant]
     Indication: MINERAL SUPPLEMENTATION

REACTIONS (2)
  - Muscle spasms [Recovered/Resolved]
  - Injection site pain [Recovered/Resolved]
